FAERS Safety Report 12659493 (Version 1)
Quarter: 2016Q3

REPORT INFORMATION
  Report Type: Spontaneous
  Country: US (occurrence: US)
  Receive Date: 20160817
  Receipt Date: 20160817
  Transmission Date: 20161109
  Serious: No
  Sender: FDA-Public Use
  Company Number: US-GLAXOSMITHKLINE-US2016113043

PATIENT
  Sex: Female

DRUGS (3)
  1. TANZEUM [Suspect]
     Active Substance: ALBIGLUTIDE
     Indication: PRODUCT USED FOR UNKNOWN INDICATION
     Dosage: 30 MG, WE
     Route: 042
     Dates: start: 201605
  2. TANZEUM [Suspect]
     Active Substance: ALBIGLUTIDE
     Dosage: 30 MG, WE
     Route: 042
  3. TANZEUM [Suspect]
     Active Substance: ALBIGLUTIDE
     Dosage: 50 MG, WE
     Route: 042

REACTIONS (5)
  - Drug dispensing error [Recovered/Resolved]
  - Overdose [Recovering/Resolving]
  - Vomiting [Recovering/Resolving]
  - Incorrect dose administered [Recovered/Resolved]
  - Nausea [Recovering/Resolving]
